FAERS Safety Report 26167350 (Version 1)
Quarter: 2025Q4

REPORT INFORMATION
  Report Type: Spontaneous
  Country: US (occurrence: US)
  Receive Date: 20251217
  Receipt Date: 20251217
  Transmission Date: 20260119
  Serious: No
  Sender: BEIGENE
  Company Number: US-BEONEMEDICINES-BGN-2025-021038

PATIENT
  Age: 73 Year
  Sex: Male

DRUGS (2)
  1. BRUKINSA [Suspect]
     Active Substance: ZANUBRUTINIB
     Indication: Lymphoplasmacytoid lymphoma/immunocytoma
     Dosage: UNK
     Route: 061
  2. BRUKINSA [Suspect]
     Active Substance: ZANUBRUTINIB
     Indication: Lymphoplasmacytoid lymphoma/immunocytoma
     Dosage: 2 TABLETS ONCE DAILY
     Route: 061
     Dates: start: 20251118

REACTIONS (3)
  - Blood pressure increased [Not Recovered/Not Resolved]
  - Nervousness [Not Recovered/Not Resolved]
  - Nausea [Not Recovered/Not Resolved]

NARRATIVE: CASE EVENT DATE: 20251101
